FAERS Safety Report 7795084-7 (Version None)
Quarter: 2011Q4

REPORT INFORMATION
  Report Type: 
  Country: None (occurrence: None)
  Receive Date: 20111004
  Receipt Date: 20110929
  Transmission Date: 20120403
  Serious: Yes (Other)
  Sender: FDA-Public Use
  Company Number: CH-ABBOTT-09P-151-0578012-00

PATIENT
  Age: 61 Year
  Sex: Female

DRUGS (10)
  1. CALCITRIOL [Concomitant]
     Indication: PRODUCT USED FOR UNKNOWN INDICATION
  2. CINACALCET [Interacting]
     Indication: PARATHYROID DISORDER
  3. SAQUINAVIR MESILATE [Interacting]
     Indication: ASYMPTOMATIC HIV INFECTION
     Route: 048
  4. MOXIFLOXACIN [Concomitant]
     Indication: PRODUCT USED FOR UNKNOWN INDICATION
     Dates: start: 20090101
  5. LAMIVUDINE (EPIVIR HBV) [Concomitant]
     Indication: PRODUCT USED FOR UNKNOWN INDICATION
     Route: 048
  6. KALETRA [Suspect]
     Indication: ASYMPTOMATIC HIV INFECTION
     Dosage: TWICE DAILY 2CAPS WITH 33.3MG/133.3MG
     Route: 048
  7. VENOFER [Concomitant]
     Indication: PRODUCT USED FOR UNKNOWN INDICATION
  8. KALETRA [Interacting]
     Dosage: 533.2/133.3MG
     Route: 048
  9. CINACALCET [Interacting]
     Indication: HYPERPARATHYROIDISM
     Dosage: 1 TABLET AT NIGHT FOR 3 NIGHTS
     Route: 048
     Dates: start: 20090101, end: 20090101
  10. ERYTHROPOIETIN HUMAN [Concomitant]
     Indication: PRODUCT USED FOR UNKNOWN INDICATION

REACTIONS (4)
  - DYSPNOEA [None]
  - DRUG INTERACTION [None]
  - HYPERSENSITIVITY [None]
  - LOCALISED OEDEMA [None]
